FAERS Safety Report 10786601 (Version 1)
Quarter: 2015Q1

REPORT INFORMATION
  Report Type: Spontaneous
  Country: US (occurrence: US)
  Receive Date: 20150211
  Receipt Date: 20150211
  Transmission Date: 20150721
  Serious: Yes (Other)
  Sender: FDA-Public Use
  Company Number: US-GILEAD-2015-0136399

PATIENT
  Age: 82 Year
  Sex: Female

DRUGS (14)
  1. SPIRIVA [Concomitant]
     Active Substance: TIOTROPIUM BROMIDE MONOHYDRATE
  2. OMEPRAZOLE MAGNESIUM. [Concomitant]
     Active Substance: OMEPRAZOLE MAGNESIUM
  3. LACTOBACILLUS ACIDOPHILUS [Concomitant]
     Active Substance: LACTOBACILLUS ACIDOPHILUS
  4. IMDUR [Concomitant]
     Active Substance: ISOSORBIDE MONONITRATE
  5. VITAMIN D3 [Concomitant]
     Active Substance: CHOLECALCIFEROL
  6. KENALOG                            /00031902/ [Concomitant]
  7. LETAIRIS [Suspect]
     Active Substance: AMBRISENTAN
     Indication: PULMONARY HYPERTENSION
     Dosage: 5 MG, QD
     Route: 048
     Dates: start: 201410, end: 201411
  8. TEMOVATE [Concomitant]
     Active Substance: CLOBETASOL PROPIONATE
  9. DESOWEN [Concomitant]
     Active Substance: DESONIDE
  10. TRIDESILON [Concomitant]
     Active Substance: ACETIC ACID\DESONIDE
  11. BUMEX [Concomitant]
     Active Substance: BUMETANIDE
  12. MAPAP [Concomitant]
     Active Substance: ACETAMINOPHEN
  13. CHERATUSSIN AC [Concomitant]
     Active Substance: CODEINE PHOSPHATE\GUAIFENESIN
  14. ARISTOCORT                         /00031902/ [Concomitant]

REACTIONS (2)
  - Peripheral swelling [Recovering/Resolving]
  - Nausea [Recovering/Resolving]
